FAERS Safety Report 9961021 (Version 1)
Quarter: 2014Q1

REPORT INFORMATION
  Report Type: Spontaneous
  Country: US (occurrence: None)
  Receive Date: 20140127
  Receipt Date: 20140127
  Transmission Date: 20141002
  Serious: Yes (Other)
  Sender: FDA-Public Use
  Company Number: 1209915

PATIENT
  Age: 68 Year
  Sex: Male

DRUGS (2)
  1. ACTILYSE [Suspect]
     Indication: PULMONARY EMBOLISM
     Dosage: OVER 1 MINUTE (10 MG), INTRAVENOUS BOLUS
     Route: 040
  2. HEPARIN (HEPARIN SODIUM) [Concomitant]

REACTIONS (2)
  - Soft tissue haemorrhage [None]
  - Haematoma [None]
